FAERS Safety Report 4500872-6 (Version None)
Quarter: 2004Q4

REPORT INFORMATION
  Report Type: 
  Country: None (occurrence: None)
  Receive Date: 20041109
  Receipt Date: 20041027
  Transmission Date: 20050328
  Serious: Yes (Hospitalization)
  Sender: FDA-Public Use
  Company Number: 2004241644US

PATIENT
  Age: 57 Year
  Sex: Female
  Weight: 72.6 kg

DRUGS (9)
  1. PACLITAXEL [Suspect]
     Indication: CARCINOMA
     Dosage: 680 MG, CYCLE, IV
     Route: 042
     Dates: start: 20040714, end: 20040714
  2. CARBOPLATIN [Suspect]
     Indication: CARCINOMA
     Dosage: 360 MG, CYCLIC 1, IV
     Route: 042
     Dates: start: 20040714, end: 20040714
  3. ETOPOSIDE [Suspect]
     Indication: CARCINOMA
     Dosage: 50 ALTERNATE WITH 100 MG, CYCLE 1, ORAL
     Route: 048
     Dates: start: 20040714, end: 20040723
  4. SYNTHROID [Concomitant]
  5. EFFEXPR (VENLAFAXINE HYDROCHLORIDE) [Concomitant]
  6. PERCOCET [Concomitant]
  7. VIOXX [Concomitant]
  8. ATIVAN [Concomitant]
  9. LOVENOX [Concomitant]

REACTIONS (2)
  - MUCOSAL INFLAMMATION [None]
  - NAUSEA [None]
